FAERS Safety Report 8699075 (Version 2)
Quarter: 2012Q4

REPORT INFORMATION
  Report Type: 
  Country: DE (occurrence: DE)
  Receive Date: 20120802
  Receipt Date: 20120830
  Transmission Date: 20130627
  Serious: Yes (Other)
  Sender: FDA-Public Use
  Company Number: DE-PFIZER INC-2012183476

PATIENT
  Age: 80 Year
  Sex: Male
  Weight: 80 kg

DRUGS (2)
  1. TORISEL [Suspect]
     Indication: MANTLE CELL LYMPHOMA
     Dosage: 75 mg, weekly
     Route: 042
     Dates: start: 201204, end: 201205
  2. TORISEL [Suspect]
     Dosage: 50 mg, weekly
     Route: 042
     Dates: start: 201205, end: 20120621

REACTIONS (1)
  - Hypoacusis [Recovered/Resolved]
